FAERS Safety Report 13131205 (Version 1)
Quarter: 2017Q1

REPORT INFORMATION
  Report Type: Spontaneous
  Country: US (occurrence: US)
  Receive Date: 20170119
  Receipt Date: 20170119
  Transmission Date: 20170428
  Serious: Yes (Other)
  Sender: FDA-Public Use
  Company Number: US-BAYER-2017-009333

PATIENT
  Sex: Female
  Weight: 68 kg

DRUGS (2)
  1. AFRIN NO DRIP SEVERE CONGESTION [Suspect]
     Active Substance: OXYMETAZOLINE HYDROCHLORIDE
     Indication: NASAL CONGESTION
     Dosage: 1 DF (1 SPRAY PER NOSTRIL), BID
     Route: 055
  2. AFRIN ORIGINAL [Suspect]
     Active Substance: OXYMETAZOLINE HYDROCHLORIDE
     Indication: NASAL CONGESTION
     Dosage: 1 DF (1 SPRAY PER NOSTRIL), BID
     Route: 055

REACTIONS (2)
  - Product use issue [Unknown]
  - Drug dependence [Unknown]
